FAERS Safety Report 6291080-X (Version None)
Quarter: 2009Q3

REPORT INFORMATION
  Report Type: 
  Country: None (occurrence: None)
  Receive Date: 20090730
  Receipt Date: 20090720
  Transmission Date: 20100115
  Serious: Yes (Hospitalization)
  Sender: FDA-Public Use
  Company Number: A0753777B

PATIENT
  Sex: Female
  Weight: 66.5 kg

DRUGS (3)
  1. LAPATINIB [Suspect]
     Dosage: 1250MG PER DAY
     Route: 048
     Dates: start: 20090410
  2. CAPECITABINE [Suspect]
     Dosage: 3300MG PER DAY
     Route: 048
     Dates: start: 20090410
  3. IBUPROFEN [Concomitant]
     Dosage: 600MG PER DAY
     Route: 048
     Dates: start: 20090521, end: 20090523

REACTIONS (3)
  - ASCITES [None]
  - PORTAL HYPERTENSION [None]
  - SPLENOMEGALY [None]
